FAERS Safety Report 15895049 (Version 1)
Quarter: 2019Q1

REPORT INFORMATION
  Report Type: Spontaneous
  Country: US (occurrence: US)
  Receive Date: 20190108
  Receipt Date: 20190108
  Transmission Date: 20190417
  Serious: Yes (Hospitalization)
  Sender: FDA-Public Use
  Company Number: None

PATIENT
  Age: 83 Year
  Sex: Female
  Weight: 45.8 kg

DRUGS (1)
  1. REGORAFENIB 120MG [Suspect]
     Active Substance: REGORAFENIB
     Indication: COLON CANCER METASTATIC
     Route: 048
     Dates: start: 20181210, end: 20181217

REACTIONS (9)
  - Gingival pain [None]
  - Confusional state [None]
  - Dyspnoea exertional [None]
  - Acute kidney injury [None]
  - Glossodynia [None]
  - Asthenia [None]
  - Pyrexia [None]
  - Rash [None]
  - Diverticulitis [None]

NARRATIVE: CASE EVENT DATE: 20181222
